FAERS Safety Report 18679454 (Version 1)
Quarter: 2020Q4

REPORT INFORMATION
  Report Type: Spontaneous
  Country: US (occurrence: US)
  Receive Date: 20201229
  Receipt Date: 20201229
  Transmission Date: 20210114
  Serious: Yes (Death)
  Sender: FDA-Public Use
  Company Number: NVSC2020US344348

PATIENT

DRUGS (4)
  1. CETUXIMAB. [Suspect]
     Active Substance: CETUXIMAB
     Indication: OESOPHAGEAL ADENOCARCINOMA
     Dosage: 400 MG/M2 (DAY 1)
     Route: 065
  2. OXALIPLATIN. [Suspect]
     Active Substance: OXALIPLATIN
     Indication: OESOPHAGEAL ADENOCARCINOMA
     Dosage: 85 MG/M2 (DAYS 1, 15, AND 29)
     Route: 065
  3. CETUXIMAB. [Suspect]
     Active Substance: CETUXIMAB
     Dosage: 250 MG/M2 (DAYS 8, 15, 22 AND 29)
     Route: 065
  4. 5 FLUOROURACIL [Suspect]
     Active Substance: FLUOROURACIL
     Indication: OESOPHAGEAL ADENOCARCINOMA
     Dosage: 180 MG/M2, Q24H
     Route: 041

REACTIONS (2)
  - Product use in unapproved indication [Unknown]
  - Pulmonary embolism [Fatal]
